FAERS Safety Report 7841750-4 (Version None)
Quarter: 2011Q4

REPORT INFORMATION
  Report Type: 
  Country: None (occurrence: None)
  Receive Date: 20111025
  Receipt Date: 20111015
  Transmission Date: 20120403
  Serious: Yes (Death, Other)
  Sender: FDA-Public Use
  Company Number: ES-JNJFOC-20111007513

PATIENT
  Age: 56 Year
  Sex: Female

DRUGS (1)
  1. FENTANYL-100 [Suspect]
     Indication: PAIN
     Route: 062
     Dates: start: 20110807

REACTIONS (4)
  - HAEMATURIA [None]
  - ASPIRATION BRONCHIAL [None]
  - VOMITING [None]
  - BLADDER DISORDER [None]
